FAERS Safety Report 8849335 (Version 5)
Quarter: 2014Q3

REPORT INFORMATION
  Report Type: Spontaneous
  Country: US (occurrence: US)
  Receive Date: 20121017
  Receipt Date: 20140812
  Transmission Date: 20150326
  Serious: Yes (Hospitalization, Other)
  Sender: FDA-Public Use
  Company Number: US-009507513-2009SP026924

PATIENT
  Sex: Female
  Weight: 81.65 kg

DRUGS (2)
  1. NUVARING [Suspect]
     Active Substance: ETHINYL ESTRADIOL\ETONOGESTREL
     Indication: CONTRACEPTION
     Route: 067
     Dates: start: 20070911, end: 20070930
  2. PHENTERMINE [Concomitant]
     Active Substance: PHENTERMINE
     Indication: PRODUCT USED FOR UNKNOWN INDICATION

REACTIONS (12)
  - Adenoma benign [Unknown]
  - Peripheral venous disease [Not Recovered/Not Resolved]
  - Omentectomy [Unknown]
  - Pulmonary embolism [Recovered/Resolved]
  - Incarcerated hernia [Unknown]
  - Device occlusion [Unknown]
  - Hyperglycaemia [Unknown]
  - Varicose vein [Not Recovered/Not Resolved]
  - Hernia repair [Unknown]
  - Deep vein thrombosis [Recovered/Resolved]
  - Thrombolysis [Unknown]
  - Menstruation irregular [Unknown]

NARRATIVE: CASE EVENT DATE: 20070930
